FAERS Safety Report 5240585-9 (Version None)
Quarter: 2007Q1

REPORT INFORMATION
  Report Type: 
  Country: None (occurrence: None)
  Receive Date: 20070219
  Receipt Date: 20070206
  Transmission Date: 20070707
  Serious: Yes (Other)
  Sender: FDA-Public Use
  Company Number: US-AMGEN-US210005

PATIENT
  Sex: Female

DRUGS (1)
  1. ENBREL [Suspect]
     Indication: PSORIASIS
     Route: 065
     Dates: start: 20070122

REACTIONS (8)
  - CHILLS [None]
  - DECREASED APPETITE [None]
  - PRURITUS [None]
  - PYREXIA [None]
  - SWELLING [None]
  - SWELLING FACE [None]
  - THIRST [None]
  - URTICARIA [None]
